FAERS Safety Report 7749903-0 (Version None)
Quarter: 2011Q3

REPORT INFORMATION
  Report Type: 
  Country: None (occurrence: None)
  Receive Date: 20110914
  Receipt Date: 20110901
  Transmission Date: 20111222
  Serious: No
  Sender: FDA-Public Use
  Company Number: US-B.I. PHARMACEUTICALS,INC./RIDGEFIELD-2011-BP-21477BP

PATIENT
  Age: 75 Year
  Sex: Female

DRUGS (7)
  1. ANTIBIOTICS [Concomitant]
     Indication: PROPHYLAXIS
  2. SPIRIVA [Suspect]
     Indication: CHRONIC OBSTRUCTIVE PULMONARY DISEASE
     Dosage: 18 MCG
     Route: 055
     Dates: start: 20110801, end: 20110825
  3. NEURONTIN [Concomitant]
     Indication: NEUROPATHY PERIPHERAL
  4. PREDNISONE [Concomitant]
     Indication: PROPHYLAXIS
  5. ADVAIR DISKUS 100/50 [Concomitant]
     Indication: CHRONIC OBSTRUCTIVE PULMONARY DISEASE
  6. PATANASE [Concomitant]
     Indication: CHRONIC OBSTRUCTIVE PULMONARY DISEASE
  7. FLUTACO [Concomitant]
     Indication: CHRONIC OBSTRUCTIVE PULMONARY DISEASE

REACTIONS (2)
  - ORAL PAIN [None]
  - FURUNCLE [None]
